FAERS Safety Report 6149748-1 (Version None)
Quarter: 2009Q2

REPORT INFORMATION
  Report Type: 
  Country: None (occurrence: None)
  Receive Date: 20090409
  Receipt Date: 20090401
  Transmission Date: 20091009
  Serious: Yes (Other)
  Sender: FDA-Public Use
  Company Number: PHHY2009JP12488

PATIENT
  Age: 73 Year
  Sex: Male

DRUGS (2)
  1. VOLTAREN [Suspect]
     Route: 048
  2. BENZODIAZEPINE DERIVATIVES [Concomitant]

REACTIONS (1)
  - DYSSTASIA [None]
